FAERS Safety Report 24226266 (Version 2)
Quarter: 2025Q2

REPORT INFORMATION
  Report Type: Report from Study
  Country: US (occurrence: US)
  Receive Date: 20240820
  Receipt Date: 20250516
  Transmission Date: 20250717
  Serious: No
  Sender: DECIPHERA PHARMACEUTICALS
  Company Number: US-DECIPHERA PHARMACEUTICALS LLC-2024US000710

PATIENT
  Age: 69 Year
  Sex: Male

DRUGS (3)
  1. QINLOCK [Suspect]
     Active Substance: RIPRETINIB
     Indication: Malignant connective tissue neoplasm
     Dosage: 150 MILLIGRAM, Q12H
     Route: 048
     Dates: start: 20240125, end: 2024
  2. QINLOCK [Suspect]
     Active Substance: RIPRETINIB
     Indication: Soft tissue sarcoma
     Dosage: 150 MILLIGRAM, Q12H
     Route: 048
     Dates: start: 2024
  3. QINLOCK [Suspect]
     Active Substance: RIPRETINIB
     Dosage: 150 MILLIGRAM, Q12H
     Route: 048

REACTIONS (7)
  - Asthenia [Unknown]
  - Rash [Unknown]
  - Dry skin [Unknown]
  - Fatigue [Unknown]
  - Product use in unapproved indication [Unknown]
  - Product dose omission in error [Unknown]
  - Extra dose administered [Unknown]

NARRATIVE: CASE EVENT DATE: 20240101
